FAERS Safety Report 9819980 (Version 1)
Quarter: 2013Q4

REPORT INFORMATION
  Report Type: Spontaneous
  Country: US (occurrence: None)
  Receive Date: 20131223
  Receipt Date: 20131223
  Transmission Date: 20140711
  Serious: No
  Sender: FDA-Public Use
  Company Number: 218213

PATIENT
  Sex: Male

DRUGS (1)
  1. PICATO [Suspect]
     Indication: ACTINIC KERATOSIS
     Dosage: 1 IN 1 D
     Dates: start: 20120623, end: 20120625

REACTIONS (4)
  - Erythema [None]
  - Swelling [None]
  - Pain [None]
  - Blister [None]
